FAERS Safety Report 13380176 (Version 4)
Quarter: 2017Q2

REPORT INFORMATION
  Report Type: Spontaneous
  Country: US (occurrence: US)
  Receive Date: 20170328
  Receipt Date: 20170621
  Transmission Date: 20170830
  Serious: No
  Sender: FDA-Public Use
  Company Number: US-TEVA-749442ACC

PATIENT
  Age: 47 Year
  Sex: Male

DRUGS (2)
  1. COPAXONE [Suspect]
     Active Substance: GLATIRAMER ACETATE
     Indication: MULTIPLE SCLEROSIS
     Dosage: PRE FILLED SYRINGE
     Route: 058
     Dates: start: 20161116
  2. ROPINIROLE. [Concomitant]
     Active Substance: ROPINIROLE

REACTIONS (8)
  - Tremor [Unknown]
  - Nodule [Unknown]
  - Cognitive disorder [Not Recovered/Not Resolved]
  - Injection site haemorrhage [Not Recovered/Not Resolved]
  - Motor dysfunction [Unknown]
  - Injection site reaction [Not Recovered/Not Resolved]
  - Mass [Not Recovered/Not Resolved]
  - Fatigue [Unknown]

NARRATIVE: CASE EVENT DATE: 2017
